FAERS Safety Report 23790429 (Version 1)
Quarter: 2024Q2

REPORT INFORMATION
  Report Type: Spontaneous
  Country: NL (occurrence: NL)
  Receive Date: 20240427
  Receipt Date: 20240427
  Transmission Date: 20240716
  Serious: Yes (Hospitalization)
  Sender: FDA-Public Use
  Company Number: None

PATIENT
  Age: 81 Year
  Sex: Male
  Weight: 79.7 kg

DRUGS (4)
  1. SULFAMETHOXAZOLE\TRIMETHOPRIM [Suspect]
     Active Substance: SULFAMETHOXAZOLE\TRIMETHOPRIM
     Indication: Pneumonia
     Dosage: 1 PIECE TWICE A DAY, COTRIMOXAZOLE 960 TABLET 160/800MG / BRAND NAME NOT SPECIFIED
     Route: 065
     Dates: start: 20240101
  2. DUTASTERIDE\TAMSULOSIN [Concomitant]
     Active Substance: DUTASTERIDE\TAMSULOSIN
     Indication: Product used for unknown indication
     Dosage: DUTASTERIDE/TAMSULOSIN 0.5/0.4MG
     Route: 065
  3. BETNELAN [Concomitant]
     Indication: Product used for unknown indication
     Dosage: DOSAGE: 1 MG/G BETAMETHASON OINTMENT 1MG/G
     Route: 065
  4. LACTULOSE [Concomitant]
     Active Substance: LACTULOSE
     Indication: Product used for unknown indication
     Dosage: DOSAGE: 670 MG/ML 670MG/ML (500MG/G) / BRAND NAME NOT SPECIFIED
     Route: 065

REACTIONS (2)
  - Pain in extremity [Recovering/Resolving]
  - Petechiae [Recovering/Resolving]
